FAERS Safety Report 5366333-X (Version None)
Quarter: 2007Q2

REPORT INFORMATION
  Report Type: 
  Country: None (occurrence: None)
  Receive Date: 20070620
  Receipt Date: 20070620
  Transmission Date: 20071010
  Serious: No
  Sender: FDA-Public Use
  Company Number: None

PATIENT
  Age: 7 Year
  Sex: Male
  Weight: 19.0511 kg

DRUGS (1)
  1. TPN [Suspect]
     Indication: SHORT-BOWEL SYNDROME
     Dosage: 594 ML 10 HRS DAILY IV DRIP
     Route: 041
     Dates: start: 20050815, end: 20060606

REACTIONS (10)
  - ABDOMINAL PAIN UPPER [None]
  - CENTRAL VENOUS CATHETERISATION [None]
  - CHILLS [None]
  - CONFUSIONAL STATE [None]
  - HYPERSOMNIA [None]
  - MUSCULAR WEAKNESS [None]
  - NERVOUSNESS [None]
  - PYREXIA [None]
  - THIRST [None]
  - VOMITING [None]
